FAERS Safety Report 17711636 (Version 4)
Quarter: 2021Q1

REPORT INFORMATION
  Report Type: Spontaneous
  Country: US (occurrence: US)
  Receive Date: 20200427
  Receipt Date: 20210106
  Transmission Date: 20210419
  Serious: Yes (Other)
  Sender: FDA-Public Use
  Company Number: US-PFIZER INC-2020164508

PATIENT
  Age: 74 Year
  Sex: Female
  Weight: 69.39 kg

DRUGS (31)
  1. GABAPENTIN. [Concomitant]
     Active Substance: GABAPENTIN
     Indication: PAIN
     Dosage: 1200 MG, DAILY (300 MG 4 1X/DAY)
     Route: 048
  2. DOXYCYCLINE HYCLATE. [Suspect]
     Active Substance: DOXYCYCLINE HYCLATE
     Indication: PYREXIA
     Dosage: UNK
     Dates: start: 20200313
  3. CYMBALTA [Concomitant]
     Active Substance: DULOXETINE HYDROCHLORIDE
     Indication: NEUROPATHY PERIPHERAL
     Dosage: 90 MG, DAILY (30 MG ORALLY AT 90 MG DAILY)
     Route: 048
  4. GABAPENTIN. [Concomitant]
     Active Substance: GABAPENTIN
     Dosage: 300 MG, 1X/DAY (300 MG IN THE MORNING)
  5. LEVOTHYROXINE SODIUM. [Concomitant]
     Active Substance: LEVOTHYROXINE SODIUM
     Dosage: 75 UG, DAILY
     Route: 048
  6. MESTINON [Concomitant]
     Active Substance: PYRIDOSTIGMINE BROMIDE
     Dosage: UNK
  7. OXYCODONE [Concomitant]
     Active Substance: OXYCODONE
     Dosage: 5 MG
  8. FIRDAPSE [Interacting]
     Active Substance: AMIFAMPRIDINE PHOSPHATE
     Dosage: 20 MG, 4X/DAY
     Route: 048
     Dates: start: 2019
  9. FIRDAPSE [Interacting]
     Active Substance: AMIFAMPRIDINE PHOSPHATE
     Dosage: 20 MG, 4X/DAY
     Route: 048
  10. HYDROCHLOROTHIAZIDE. [Concomitant]
     Active Substance: HYDROCHLOROTHIAZIDE
     Indication: HYPERTENSION
     Dosage: 25 MG, DAILY
     Route: 048
  11. FIRDAPSE [Interacting]
     Active Substance: AMIFAMPRIDINE PHOSPHATE
     Dosage: 20 MG, 4X/DAY
     Route: 048
  12. CYMBALTA [Concomitant]
     Active Substance: DULOXETINE HYDROCHLORIDE
     Indication: PAIN
  13. CLONAZEPAM. [Concomitant]
     Active Substance: CLONAZEPAM
     Indication: SLEEP DISORDER
     Dosage: UNK, 1X/DAY (AT NIGHT)
  14. OXYCODONE [Concomitant]
     Active Substance: OXYCODONE
     Dosage: 7.5 MG, 4X/DAY (5 MG AT 7.5 MG ORALLY EVERY 6 HOURS)
     Route: 048
  15. TESSALON [Concomitant]
     Active Substance: BENZONATATE
     Dosage: 400 MG, AS NEEDED ( 200 MG AT 400 MG ORALLY EVERY 8 HOURS AS NEEDED)
     Route: 048
  16. TYLENOL [Concomitant]
     Active Substance: ACETAMINOPHEN
     Dosage: 650 MG, AS NEEDED (ORALLY EVERY 6 HOURS AS NEEDED)
     Route: 048
  17. FIRDAPSE [Interacting]
     Active Substance: AMIFAMPRIDINE PHOSPHATE
     Indication: MYASTHENIC SYNDROME
     Dosage: 20 MG, 4X/DAY
     Route: 048
     Dates: start: 201901, end: 201904
  18. FIRDAPSE [Interacting]
     Active Substance: AMIFAMPRIDINE PHOSPHATE
     Dosage: 20 MG, 4X/DAY
     Route: 048
  19. FIRDAPSE [Interacting]
     Active Substance: AMIFAMPRIDINE PHOSPHATE
     Dosage: 20 MG, 4X/DAY
     Route: 048
     Dates: end: 202010
  20. ASPIRIN [ACETYLSALICYLIC ACID] [Concomitant]
     Active Substance: ASPIRIN
     Dosage: UNK (LOW DOSE)
  21. CRESTOR [Concomitant]
     Active Substance: ROSUVASTATIN CALCIUM
     Indication: BLOOD CHOLESTEROL INCREASED
     Dosage: 20 MG, 1X/DAY
  22. DULOXETINE HYDROCHLORIDE. [Concomitant]
     Active Substance: DULOXETINE HYDROCHLORIDE
     Indication: PAIN
     Dosage: 120 MG, DAILY (1 CAPSULE IN THE MORNING AND 3 CAPSULES AT NIGHT)
  23. ATORVASTATIN CALCIUM. [Concomitant]
     Active Substance: ATORVASTATIN CALCIUM
     Dosage: 10 MG, DAILY
     Route: 048
  24. DULOXETINE HYDROCHLORIDE. [Concomitant]
     Active Substance: DULOXETINE HYDROCHLORIDE
     Indication: NEUROPATHY PERIPHERAL
     Dosage: 90 MG, 1X/DAY
  25. FLECAINIDE [FLECAINIDE ACETATE] [Concomitant]
     Active Substance: FLECAINIDE ACETATE
     Indication: ATRIAL FIBRILLATION
     Dosage: 50 MG, 2X/DAY
     Route: 048
  26. GABAPENTIN. [Concomitant]
     Active Substance: GABAPENTIN
     Dosage: 900 MG, 1X/DAY (900 MG AT NIGHT)
  27. GLOBULIN [Concomitant]
     Dosage: 400 MG/KG, DAILY ( DAILY FOR 5 DAYS INTRAVENOUSLY EVERY 4 WEEKS)
     Route: 042
  28. VITAMIN D [VITAMIN D NOS] [Concomitant]
     Active Substance: VITAMIN D NOS
     Indication: SUPPLEMENTATION THERAPY
     Dosage: UNK
  29. FIRDAPSE [Interacting]
     Active Substance: AMIFAMPRIDINE PHOSPHATE
     Dosage: 20 MG, 4X/DAY
     Route: 048
  30. ATENOLOL. [Concomitant]
     Active Substance: ATENOLOL
     Dosage: 50 MG
  31. ACETYLCYSTEINE. [Concomitant]
     Active Substance: ACETYLCYSTEINE
     Dosage: UNK UNK, 4X/DAY [0.6 G, 6 ML, INHALED 4X/DAY]

REACTIONS (3)
  - Pruritus [Recovered/Resolved]
  - Drug interaction [Recovered/Resolved]
  - Neoplasm recurrence [Unknown]

NARRATIVE: CASE EVENT DATE: 2020
